FAERS Safety Report 7049012-2 (Version None)
Quarter: 2010Q4

REPORT INFORMATION
  Report Type: 
  Country: None (occurrence: None)
  Receive Date: 20101018
  Receipt Date: 20101007
  Transmission Date: 20110411
  Serious: No
  Sender: FDA-Public Use
  Company Number: KR-JNJFOC-20101002330

PATIENT
  Age: 67 Year
  Sex: Female

DRUGS (3)
  1. DURAGESIC-100 [Suspect]
     Indication: PAIN MANAGEMENT
     Dosage: HALF A PATCH OF 12.5 UG/HR
     Route: 062
  2. MOTILIUM [Concomitant]
     Indication: NAUSEA
     Dosage: 2 TABLETS
     Route: 048
  3. MOTILIUM [Concomitant]
     Indication: ANTIEMETIC SUPPORTIVE CARE
     Dosage: 2 TABLETS
     Route: 048

REACTIONS (2)
  - DRUG ADMINISTRATION ERROR [None]
  - SOMNOLENCE [None]
